FAERS Safety Report 10480616 (Version 1)
Quarter: 2014Q3

REPORT INFORMATION
  Report Type: Spontaneous
  Country: US (occurrence: None)
  Receive Date: 20140926
  Receipt Date: 20140926
  Transmission Date: 20150326
  Serious: Yes (Hospitalization)
  Sender: FDA-Public Use
  Company Number: None

PATIENT
  Age: 4 Year
  Sex: Male
  Weight: 41.9 kg

DRUGS (9)
  1. SYNTHROID [Concomitant]
     Active Substance: LEVOTHYROXINE SODIUM
  2. VYVANSE [Concomitant]
     Active Substance: LISDEXAMFETAMINE DIMESYLATE
  3. ATIVAN [Concomitant]
     Active Substance: LORAZEPAM
  4. SCOPOLAMINE TRANSDERMAL [Concomitant]
  5. PEGINTERFERON ALFA-2B [Suspect]
     Active Substance: PEGINTERFERON ALFA-2B
  6. HYDROCORTISONE. [Concomitant]
     Active Substance: HYDROCORTISONE
  7. MORPHINE [Concomitant]
     Active Substance: MORPHINE
  8. VITAMIN D [Concomitant]
     Active Substance: CHOLECALCIFEROL
  9. ACETOMINOPHEN [Concomitant]

REACTIONS (11)
  - Depressed level of consciousness [None]
  - Fall [None]
  - Hypersomnia [None]
  - Asthenia [None]
  - Movement disorder [None]
  - Dysstasia [None]
  - Metastasis [None]
  - Brain stem glioma [None]
  - Dyspnoea [None]
  - No therapeutic response [None]
  - Aspiration [None]

NARRATIVE: CASE EVENT DATE: 20140912
